FAERS Safety Report 4548391-5 (Version None)
Quarter: 2004Q4

REPORT INFORMATION
  Report Type: 
  Country: None (occurrence: None)
  Receive Date: 20041220
  Receipt Date: 20031103
  Transmission Date: 20050328
  Serious: Yes (Hospitalization, Other)
  Sender: FDA-Public Use
  Company Number: US_031198705

PATIENT
  Age: 49 Year
  Sex: Male
  Weight: 99 kg

DRUGS (5)
  1. HUMULIN N [Suspect]
     Indication: DIABETES MELLITUS
     Dates: start: 19730101
  2. INSULIN GLARGINE [Concomitant]
  3. HUMULIN L [Suspect]
     Indication: DIABETES MELLITUS
  4. HUMULIN R [Suspect]
     Indication: DIABETES MELLITUS
     Dates: start: 19900101, end: 20030501
  5. HUMALOG [Suspect]
     Indication: DIABETES MELLITUS
     Dates: start: 20030501

REACTIONS (1)
  - HYPOGLYCAEMIA [None]
